FAERS Safety Report 6781363-9 (Version None)
Quarter: 2010Q2

REPORT INFORMATION
  Report Type: 
  Country: None (occurrence: None)
  Receive Date: 20100616
  Receipt Date: 20100601
  Transmission Date: 20101027
  Serious: Yes (Hospitalization)
  Sender: FDA-Public Use
  Company Number: THQ2010A00551

PATIENT
  Age: 62 Year
  Sex: Female

DRUGS (7)
  1. PIOGLITAZONE HYDROCHLORIDE (PIOGLITAZONS HYDROCHLORIDE) [Suspect]
     Indication: TYPE 2 DIABETES MELLITUS
     Dosage: 30 MG (30 MG,1 IN 1 D), PER ORAL
     Route: 048
     Dates: start: 20090422, end: 20091102
  2. SITAGLIPTIN PHOSPHATE(ANTI-DIABETICS) [Suspect]
     Dosage: 100 MG (100 MG, PER ORAL
     Route: 048
     Dates: start: 20090422, end: 20090519
  3. SITAGLIPTIN PHOSPHATE(ANTI-DIABETICS) [Suspect]
     Dosage: 100 MG (100 MG, PER ORAL
     Route: 048
     Dates: start: 20090520, end: 20090805
  4. SITAGLIPTIN PHOSPHATE(ANTI-DIABETICS) [Suspect]
     Dosage: 100 MG (100 MG, PER ORAL
     Route: 048
     Dates: start: 20090808, end: 20091102
  5. PLACEBO [Suspect]
     Dates: start: 20090403, end: 20090421
  6. ACCUZIDE (HYDROCHLOROTHIAZIDE, QUINAPRIL HYDROCHLORIDE) [Concomitant]
  7. ACCUPRO (QUINAPRIL HYDROCHLORIDE) [Concomitant]

REACTIONS (6)
  - ANGINA UNSTABLE [None]
  - ATRIAL FIBRILLATION [None]
  - CARDIAC FAILURE [None]
  - CONDITION AGGRAVATED [None]
  - DYSLIPIDAEMIA [None]
  - HYPERTENSION [None]
